FAERS Safety Report 14379681 (Version 1)
Quarter: 2018Q1

REPORT INFORMATION
  Report Type: Spontaneous
  Country: US (occurrence: US)
  Receive Date: 20180111
  Receipt Date: 20180111
  Transmission Date: 20180509
  Serious: Yes (Death)
  Sender: FDA-Public Use
  Company Number: None

PATIENT
  Age: 62 Year
  Sex: Male
  Weight: 102.9 kg

DRUGS (2)
  1. ETOPOSIDE (VP-16) [Suspect]
     Active Substance: ETOPOSIDE
     Dates: end: 20170601
  2. CISPLATIN. [Suspect]
     Active Substance: CISPLATIN
     Dates: end: 20170530

REACTIONS (5)
  - Blood creatinine increased [None]
  - Blood magnesium increased [None]
  - Overdose [None]
  - Dehydration [None]
  - Anaemia [None]

NARRATIVE: CASE EVENT DATE: 20170609
